FAERS Safety Report 9152604 (Version 4)
Quarter: 2013Q2

REPORT INFORMATION
  Report Type: Spontaneous
  Country: US (occurrence: US)
  Receive Date: 20130308
  Receipt Date: 20130501
  Transmission Date: 20140414
  Serious: No
  Sender: FDA-Public Use
  Company Number: US-TEVA-389863USA

PATIENT
  Age: 32 Year
  Sex: Female
  Weight: 89.44 kg

DRUGS (1)
  1. PLAN B ONE-STEP [Suspect]
     Indication: POST COITAL CONTRACEPTION
     Dosage: 1.5 MILLIGRAM DAILY;
     Route: 048
     Dates: start: 20130216, end: 20130216

REACTIONS (3)
  - Gastrooesophageal reflux disease [Recovered/Resolved]
  - Breast tenderness [Recovered/Resolved]
  - Pelvic pain [Recovered/Resolved]
